FAERS Safety Report 12464664 (Version 3)
Quarter: 2017Q3

REPORT INFORMATION
  Report Type: Report from Study
  Country: None (occurrence: BR)
  Receive Date: 20160614
  Receipt Date: 20170824
  Transmission Date: 20171127
  Serious: Yes (Hospitalization, Other)
  Sender: FDA-Public Use
  Company Number: BR-ABBVIE-15K-020-1417998-00

PATIENT
  Age: 71 Year
  Sex: Female
  Weight: 62 kg

DRUGS (18)
  1. HYDROCHLOROTHIAZIDE. [Concomitant]
     Active Substance: HYDROCHLOROTHIAZIDE
     Indication: BLOOD PRESSURE ABNORMAL
     Route: 048
  2. PREDNISONE. [Concomitant]
     Active Substance: PREDNISONE
     Indication: ARTHRITIS
     Route: 048
     Dates: start: 2006
  3. CYCLOBENZAPRINE. [Concomitant]
     Active Substance: CYCLOBENZAPRINE
     Indication: RHEUMATOID ARTHRITIS
     Route: 048
  4. RANITIDINE. [Concomitant]
     Active Substance: RANITIDINE
     Indication: ARTHRITIS
     Route: 048
  5. ATENOLOL. [Concomitant]
     Active Substance: ATENOLOL
     Indication: BLOOD PRESSURE ABNORMAL
     Route: 048
  6. FAMOTIDINE. [Concomitant]
     Active Substance: FAMOTIDINE
     Route: 048
     Dates: start: 2006
  7. PREDNISONE. [Concomitant]
     Active Substance: PREDNISONE
     Indication: RHEUMATOID ARTHRITIS
     Route: 048
  8. NIMESULIDE [Concomitant]
     Active Substance: NIMESULIDE
     Indication: RHEUMATOID ARTHRITIS
     Route: 048
  9. HUMIRA [Suspect]
     Active Substance: ADALIMUMAB
     Indication: RHEUMATOID ARTHRITIS
     Route: 058
     Dates: start: 20060103, end: 201505
  10. HUMIRA [Suspect]
     Active Substance: ADALIMUMAB
     Route: 058
  11. CYCLOBENZAPRINE. [Concomitant]
     Active Substance: CYCLOBENZAPRINE
     Indication: ARTHRITIS
  12. LOSARTAN. [Concomitant]
     Active Substance: LOSARTAN
     Indication: BLOOD PRESSURE ABNORMAL
     Route: 048
  13. FAMOTIDINE. [Concomitant]
     Active Substance: FAMOTIDINE
     Indication: RHEUMATOID ARTHRITIS
     Route: 048
     Dates: start: 2005
  14. GINKGO BILOBA [Concomitant]
     Active Substance: GINKGO
     Indication: ARTHRITIS
     Route: 048
  15. CHLOROQUINE DIPHOSPHATE [Concomitant]
     Active Substance: CHLOROQUINE PHOSPHATE
     Indication: ARTHRITIS
     Route: 048
     Dates: start: 2006
  16. NIMESULIDE [Concomitant]
     Active Substance: NIMESULIDE
     Indication: ARTHRITIS
     Route: 048
     Dates: start: 2006
  17. HUMIRA [Suspect]
     Active Substance: ADALIMUMAB
     Route: 058
  18. SIMVASTATIN. [Concomitant]
     Active Substance: SIMVASTATIN
     Indication: BLOOD PRESSURE ABNORMAL
     Route: 048

REACTIONS (17)
  - Inflammation [Unknown]
  - Wound drainage [Unknown]
  - Diabetes mellitus [Not Recovered/Not Resolved]
  - Post procedural complication [Unknown]
  - Blood glucose decreased [Recovered/Resolved]
  - Gait disturbance [Recovered/Resolved]
  - Weight decreased [Recovering/Resolving]
  - Joint swelling [Recovered/Resolved]
  - Gastrointestinal disorder [Recovered/Resolved]
  - Pruritus generalised [Not Recovered/Not Resolved]
  - Peripheral swelling [Recovered/Resolved]
  - Headache [Recovered/Resolved]
  - Diabetic complication [Unknown]
  - Localised infection [Recovered/Resolved]
  - Musculoskeletal stiffness [Recovered/Resolved]
  - Diabetes mellitus [Recovering/Resolving]
  - Purulence [Recovered/Resolved]

NARRATIVE: CASE EVENT DATE: 201505
